FAERS Safety Report 18671468 (Version 2)
Quarter: 2021Q3

REPORT INFORMATION
  Report Type: Spontaneous
  Country: US (occurrence: US)
  Receive Date: 20201228
  Receipt Date: 20210929
  Transmission Date: 20211014
  Serious: No
  Sender: FDA-Public Use
  Company Number: US-PFIZER INC-2020508470

PATIENT
  Age: 55 Year
  Sex: Male

DRUGS (2)
  1. VIAGRA [Suspect]
     Active Substance: SILDENAFIL CITRATE
     Dosage: 3 PILLS
  2. VIAGRA [Suspect]
     Active Substance: SILDENAFIL CITRATE
     Dosage: TOOK ABOUT 4 PILLS

REACTIONS (5)
  - Semen volume increased [Unknown]
  - Erection increased [Unknown]
  - Intentional product misuse [Unknown]
  - Dizziness [Unknown]
  - Nausea [Unknown]
